FAERS Safety Report 9917285 (Version 1)
Quarter: 2014Q1

REPORT INFORMATION
  Report Type: Spontaneous
  Country: JP (occurrence: JP)
  Receive Date: 20140221
  Receipt Date: 20140221
  Transmission Date: 20141002
  Serious: Yes (Other)
  Sender: FDA-Public Use
  Company Number: JP-PFIZER INC-2014046974

PATIENT
  Age: 73 Year
  Sex: Female

DRUGS (2)
  1. CARBOPLATIN [Suspect]
     Dosage: 500 MG, CYCLIC
  2. PACLITAXEL [Concomitant]
     Dosage: 240 MG, CYCLIC

REACTIONS (1)
  - Inappropriate antidiuretic hormone secretion [Recovering/Resolving]
